FAERS Safety Report 8295026-4 (Version None)
Quarter: 2012Q2

REPORT INFORMATION
  Report Type: 
  Country: None (occurrence: None)
  Receive Date: 20120418
  Receipt Date: 20120410
  Transmission Date: 20120825
  Serious: Yes (Other)
  Sender: FDA-Public Use
  Company Number: FR-ELI_LILLY_AND_COMPANY-FR201204002697

PATIENT
  Sex: Male

DRUGS (10)
  1. LYRICA [Concomitant]
     Dosage: 25 MG, UNK
     Route: 048
  2. PREDNISOLONE [Concomitant]
     Indication: PREMEDICATION
     Dosage: 30 MG, QD
     Route: 048
     Dates: start: 20110205, end: 20110207
  3. OXYCODONE HCL [Concomitant]
     Indication: PAIN
     Dosage: 10 MG, QD
     Route: 048
     Dates: start: 20110101
  4. INNOHEP [Concomitant]
     Dosage: 5000UI/0.5MLI, UNK
     Route: 058
  5. TETRAZEPAM [Concomitant]
  6. ZOPICLONE [Concomitant]
  7. ALIMTA [Suspect]
     Indication: LUNG CARCINOMA CELL TYPE UNSPECIFIED STAGE IV
     Dosage: 500 MG/M2, UNKNOWN
     Route: 042
     Dates: start: 20120206
  8. ZOMETA [Concomitant]
     Dosage: 4 MG, UNK
     Route: 042
  9. OXYCONTIN [Concomitant]
     Indication: METASTATIC PAIN
     Dosage: 40 MG, QD
     Route: 048
     Dates: start: 20110101
  10. TARKA [Concomitant]
     Route: 048

REACTIONS (1)
  - HALLUCINATION, VISUAL [None]
